FAERS Safety Report 5268870-5 (Version None)
Quarter: 2007Q1

REPORT INFORMATION
  Report Type: 
  Country: None (occurrence: None)
  Receive Date: 20070313
  Receipt Date: 20070301
  Transmission Date: 20070707
  Serious: Yes (Other)
  Sender: FDA-Public Use
  Company Number: GXKR2007IT02205

PATIENT
  Age: 86 Year
  Sex: Female

DRUGS (1)
  1. TRAMADOL HCL [Suspect]
     Indication: RESTLESS LEGS SYNDROME
     Dosage: 50 00 MG, EVERY 2-3 HOUR, UNK

REACTIONS (4)
  - CONDITION AGGRAVATED [None]
  - MOVEMENT DISORDER [None]
  - PARAESTHESIA [None]
  - RESTLESS LEGS SYNDROME [None]
